FAERS Safety Report 6152817-3 (Version None)
Quarter: 2009Q2

REPORT INFORMATION
  Report Type: 
  Country: None (occurrence: None)
  Receive Date: 20090413
  Receipt Date: 20090401
  Transmission Date: 20091009
  Serious: Yes (Other)
  Sender: FDA-Public Use
  Company Number: PHHY2009DE12265

PATIENT
  Age: 52 Year
  Sex: Female

DRUGS (2)
  1. DICLOFENAC [Suspect]
     Indication: ARTHROPATHY
     Route: 048
  2. PENICILLIN [Suspect]

REACTIONS (16)
  - ACUTE GENERALISED EXANTHEMATOUS PUSTULOSIS [None]
  - ALANINE AMINOTRANSFERASE INCREASED [None]
  - ASPARTATE AMINOTRANSFERASE INCREASED [None]
  - C-REACTIVE PROTEIN INCREASED [None]
  - ERYTHEMA [None]
  - EYELID OEDEMA [None]
  - LEUKOCYTOSIS [None]
  - MALAISE [None]
  - NASOPHARYNGITIS [None]
  - OEDEMA [None]
  - OROPHARYNGEAL PAIN [None]
  - PYREXIA [None]
  - RASH PUSTULAR [None]
  - SKIN EXFOLIATION [None]
  - SWELLING [None]
  - TRANSAMINASES INCREASED [None]
